FAERS Safety Report 7623361-9 (Version None)
Quarter: 2011Q3

REPORT INFORMATION
  Report Type: 
  Country: None (occurrence: None)
  Receive Date: 20110720
  Receipt Date: 20110711
  Transmission Date: 20111222
  Serious: Yes (Other)
  Sender: FDA-Public Use
  Company Number: US-JNJFOC-20110704946

PATIENT
  Sex: Female
  Weight: 103.87 kg

DRUGS (6)
  1. IMURAN [Concomitant]
     Indication: CROHN'S DISEASE
     Route: 048
  2. REMICADE [Suspect]
     Indication: CROHN'S DISEASE
     Route: 042
     Dates: start: 20110601
  3. LEVOTHYROXINE SODIUM [Concomitant]
     Indication: HYPOTHYROIDISM
     Route: 048
  4. NORETHINDRONE ACETATE [Concomitant]
     Indication: PRODUCT USED FOR UNKNOWN INDICATION
     Dosage: ^FOR USE WITH LUPRON^
     Route: 048
     Dates: start: 20110701
  5. LEXAPRO [Concomitant]
     Indication: ANXIETY
     Route: 048
  6. LUPRON [Concomitant]
     Indication: ENDOMETRIOSIS
     Dosage: MONTHLY
     Route: 065
     Dates: start: 20110101

REACTIONS (1)
  - METRORRHAGIA [None]
